FAERS Safety Report 6268425-X (Version None)
Quarter: 2009Q3

REPORT INFORMATION
  Report Type: 
  Country: None (occurrence: None)
  Receive Date: 20090715
  Receipt Date: 20090702
  Transmission Date: 20100115
  Serious: Yes (Hospitalization)
  Sender: FDA-Public Use
  Company Number: US-ALEXION-A200900547

PATIENT
  Sex: Female

DRUGS (4)
  1. SOLIRIS [Suspect]
     Indication: PAROXYSMAL NOCTURNAL HAEMOGLOBINURIA
     Dosage: 600 MG, QW
     Route: 042
     Dates: start: 20090120, end: 20090201
  2. SOLIRIS [Suspect]
     Dosage: 900 MG, Q2W
     Route: 042
     Dates: start: 20090101
  3. LOVENOX [Suspect]
     Indication: ANTICOAGULANT THERAPY
     Dosage: 75 MG, BID
     Route: 030
     Dates: end: 20090601
  4. LOVENOX [Suspect]
     Dosage: 70 MG, QD
     Route: 030
     Dates: start: 20090601

REACTIONS (1)
  - HAEMATOMA [None]
